FAERS Safety Report 11571985 (Version 1)
Quarter: 2015Q3

REPORT INFORMATION
  Report Type: Spontaneous
  Country: US (occurrence: US)
  Receive Date: 20150929
  Receipt Date: 20150929
  Transmission Date: 20151125
  Serious: No
  Sender: FDA-Public Use
  Company Number: US-SA-2015SA128946

PATIENT
  Age: 53 Year
  Sex: Female
  Weight: 99.79 kg

DRUGS (6)
  1. DULOXETINE. [Concomitant]
     Active Substance: DULOXETINE
  2. LYRICA [Concomitant]
     Active Substance: PREGABALIN
  3. LAMICTAL [Concomitant]
     Active Substance: LAMOTRIGINE
  4. TYLENOL [Concomitant]
     Active Substance: ACETAMINOPHEN
  5. AUBAGIO [Suspect]
     Active Substance: TERIFLUNOMIDE
     Indication: MULTIPLE SCLEROSIS
     Route: 048
     Dates: start: 201506
  6. ZANAFLEX [Concomitant]
     Active Substance: TIZANIDINE HYDROCHLORIDE

REACTIONS (1)
  - Depression [Unknown]
